FAERS Safety Report 23961420 (Version 2)
Quarter: 2024Q2

REPORT INFORMATION
  Report Type: Report from Study
  Country: CA (occurrence: CA)
  Receive Date: 20240611
  Receipt Date: 20240626
  Transmission Date: 20240716
  Serious: Yes (Death, Hospitalization, Other)
  Sender: FDA-Public Use
  Company Number: CA-ROCHE-3520651

PATIENT
  Age: 83 Year
  Sex: Male

DRUGS (4)
  1. ACTEMRA [Suspect]
     Active Substance: TOCILIZUMAB
     Indication: VEXAS syndrome
     Route: 058
  2. ACTEMRA [Suspect]
     Active Substance: TOCILIZUMAB
     Route: 058
     Dates: start: 20240216, end: 2024
  3. ACTEMRA [Suspect]
     Active Substance: TOCILIZUMAB
     Route: 058
     Dates: start: 202403, end: 2024
  4. ACTEMRA [Suspect]
     Active Substance: TOCILIZUMAB
     Route: 058
     Dates: start: 202405

REACTIONS (20)
  - Pneumonia [Fatal]
  - Skin cancer [Unknown]
  - Nausea [Unknown]
  - Off label use [Unknown]
  - Skin ulcer [Unknown]
  - Ill-defined disorder [Unknown]
  - Dysstasia [Unknown]
  - Feeling abnormal [Unknown]
  - Swelling face [Unknown]
  - Mass [Unknown]
  - Deafness unilateral [Unknown]
  - Hypoacusis [Unknown]
  - Eye swelling [Unknown]
  - Renal impairment [Unknown]
  - General physical health deterioration [Unknown]
  - Full blood count decreased [Unknown]
  - Headache [Unknown]
  - Fatigue [Unknown]
  - Pain in extremity [Unknown]
  - Arthralgia [Unknown]

NARRATIVE: CASE EVENT DATE: 20240401
